FAERS Safety Report 8544797-8 (Version None)
Quarter: 2012Q3

REPORT INFORMATION
  Report Type: 
  Country: None (occurrence: None)
  Receive Date: 20120727
  Receipt Date: 20120724
  Transmission Date: 20120928
  Serious: Yes (Life-Threatening)
  Sender: FDA-Public Use
  Company Number: FR-ROCHE-1089433

PATIENT
  Age: 58 Year
  Sex: Female

DRUGS (6)
  1. DEDROGYL [Concomitant]
     Dates: start: 20080101
  2. NEORAL [Suspect]
     Indication: PRODUCT USED FOR UNKNOWN INDICATION
     Route: 048
     Dates: start: 20020901, end: 20111201
  3. PREDNISOLONE [Concomitant]
     Dates: start: 20020101
  4. CELLCEPT [Suspect]
     Indication: PRODUCT USED FOR UNKNOWN INDICATION
     Route: 048
     Dates: start: 20020101, end: 20111201
  5. POTASSIUM CHLORIDE [Concomitant]
  6. NEXIUM [Concomitant]
     Dates: start: 20111201

REACTIONS (1)
  - CENTRAL NERVOUS SYSTEM LYMPHOMA [None]
